APPROVED DRUG PRODUCT: NYSTATIN
Active Ingredient: NYSTATIN
Strength: 100,000 UNITS/ML
Dosage Form/Route: SUSPENSION;ORAL
Application: A062512 | Product #001 | TE Code: AA
Applicant: PHARMOBEDIENT CONSULTING LLC
Approved: Oct 29, 1984 | RLD: No | RS: No | Type: RX